FAERS Safety Report 5282341-1 (Version None)
Quarter: 2007Q1

REPORT INFORMATION
  Report Type: 
  Country: None (occurrence: None)
  Receive Date: 20070326
  Receipt Date: 20070315
  Transmission Date: 20070707
  Serious: Yes (Life-Threatening, Hospitalization, Other)
  Sender: FDA-Public Use
  Company Number: 2007RR-06395

PATIENT
  Age: 78 Year
  Sex: Female
  Weight: 70 kg

DRUGS (6)
  1. SIMVASTATIN [Suspect]
     Indication: HYPERCHOLESTEROLAEMIA
     Dosage: 40 MG, QD, ORAL
     Route: 048
     Dates: start: 20050801, end: 20070130
  2. FUSIDIC ACID [Suspect]
     Indication: SHOULDER OPERATION
     Dosage: 500 MG, TID
     Dates: start: 20070101, end: 20070130
  3. BENDROFLUAZIDE [Concomitant]
  4. DIHYDROCODEINE COMPOUND [Concomitant]
  5. RANITIDINE [Concomitant]
  6. VERAPAMIL [Concomitant]

REACTIONS (4)
  - DRUG INTERACTION [None]
  - GAIT DISTURBANCE [None]
  - PARAPARESIS [None]
  - RHABDOMYOLYSIS [None]
